FAERS Safety Report 8063384-1 (Version None)
Quarter: 2012Q1

REPORT INFORMATION
  Report Type: 
  Country: None (occurrence: None)
  Receive Date: 20120123
  Receipt Date: 20120123
  Transmission Date: 20120608
  Serious: Yes (Life-Threatening, Hospitalization, Other)
  Sender: FDA-Public Use
  Company Number: None

PATIENT
  Age: 39 Year
  Sex: Female
  Weight: 68.038 kg

DRUGS (1)
  1. OXYCONTIN [Suspect]
     Indication: ENDOMETRIOSIS
     Dosage: 1 80MG TAB
     Route: 048
     Dates: start: 20101004, end: 20101017

REACTIONS (6)
  - RESPIRATORY DISORDER [None]
  - SWOLLEN TONGUE [None]
  - PHARYNGEAL OEDEMA [None]
  - URTICARIA [None]
  - OEDEMA PERIPHERAL [None]
  - PRODUCT FORMULATION ISSUE [None]
